FAERS Safety Report 6372013-4 (Version None)
Quarter: 2009Q3

REPORT INFORMATION
  Report Type: 
  Country: None (occurrence: None)
  Receive Date: 20090923
  Receipt Date: 20090915
  Transmission Date: 20100115
  Serious: Yes (Death, Hospitalization)
  Sender: FDA-Public Use
  Company Number: US-GENENTECH-290565

PATIENT
  Age: 66 Year
  Sex: Female

DRUGS (1)
  1. AVASTIN [Suspect]
     Indication: BREAST CANCER METASTATIC
     Dosage: UNK
     Dates: start: 20090101

REACTIONS (1)
  - DEATH [None]
